FAERS Safety Report 17049522 (Version 2)
Quarter: 2019Q4

REPORT INFORMATION
  Report Type: Spontaneous
  Country: BE (occurrence: BE)
  Receive Date: 20191119
  Receipt Date: 20191203
  Transmission Date: 20200122
  Serious: Yes (Hospitalization)
  Sender: FDA-Public Use
  Company Number: BE-BAUSCH-BL-2019-061615

PATIENT
  Age: 7 Year
  Sex: Male
  Weight: 25 kg

DRUGS (1)
  1. CYCLOPENTOLATE HYDROCHLORIDE. [Suspect]
     Active Substance: CYCLOPENTOLATE HYDROCHLORIDE
     Indication: PRODUCT USED FOR UNKNOWN INDICATION
     Route: 047

REACTIONS (1)
  - Confusional state [Unknown]
